FAERS Safety Report 4801853-5 (Version None)
Quarter: 2005Q4

REPORT INFORMATION
  Report Type: 
  Country: None (occurrence: None)
  Receive Date: 20051011
  Receipt Date: 20050925
  Transmission Date: 20060501
  Serious: Yes (Hospitalization)
  Sender: FDA-Public Use
  Company Number: DSA_81442_2005

PATIENT
  Age: 26 Year
  Sex: Male
  Weight: 83.9154 kg

DRUGS (5)
  1. XYREM [Suspect]
     Indication: NARCOLEPSY
     Dosage: 1.5 G TWICE NIGHTY PO
     Route: 048
     Dates: start: 20050205, end: 20051003
  2. RISPERIDONE [Concomitant]
  3. CLONAZEPAM [Concomitant]
  4. EFFEXOR XR [Concomitant]
  5. PROVIGIL [Concomitant]

REACTIONS (4)
  - LOSS OF CONSCIOUSNESS [None]
  - MEDICATION ERROR [None]
  - POISONING [None]
  - RESPIRATORY ARREST [None]
